FAERS Safety Report 11623019 (Version 1)
Quarter: 2015Q4

REPORT INFORMATION
  Report Type: Spontaneous
  Country: US (occurrence: US)
  Receive Date: 20151013
  Receipt Date: 20151013
  Transmission Date: 20160304
  Serious: No
  Sender: FDA-Public Use
  Company Number: US-JNJFOC-20150903625

PATIENT
  Age: 78 Year
  Sex: Female

DRUGS (5)
  1. PREDNISONE. [Concomitant]
     Active Substance: PREDNISONE
     Indication: SYSTEMIC LUPUS ERYTHEMATOSUS
     Route: 065
  2. DIABETES MEDICINE [Concomitant]
     Indication: DIABETES MELLITUS
     Route: 065
  3. TYLENOL EXTRA STRENGTH [Suspect]
     Active Substance: ACETAMINOPHEN
     Indication: PAIN
     Dosage: AT 6AM
     Route: 048
     Dates: start: 20150903
  4. UNSPECIFIED BLOOD PRESSURE MEDS [Concomitant]
     Indication: HYPERTENSION
     Route: 065
  5. TYLENOL EXTRA STRENGTH [Suspect]
     Active Substance: ACETAMINOPHEN
     Indication: HEADACHE
     Dosage: AT 6AM
     Route: 048
     Dates: start: 20150903

REACTIONS (2)
  - Rash [Not Recovered/Not Resolved]
  - Hypersensitivity [Not Recovered/Not Resolved]

NARRATIVE: CASE EVENT DATE: 20150903
